FAERS Safety Report 8955048 (Version 2)
Quarter: 2012Q4

REPORT INFORMATION
  Report Type: 
  Country: US (occurrence: US)
  Receive Date: 20121207
  Receipt Date: 20121214
  Transmission Date: 20130627
  Serious: Yes (Other)
  Sender: FDA-Public Use
  Company Number: US-BRISTOL-MYERS SQUIBB COMPANY-17162348

PATIENT
  Age: 44 Year
  Sex: Male
  Weight: 77.1 kg

DRUGS (5)
  1. ABILIFY [Suspect]
     Indication: BIPOLAR DISORDER
     Dosage: interrupted in Sep12,restarted on 13/14Sep12
  2. ABILIFY [Suspect]
     Indication: ATTENTION DEFICIT/HYPERACTIVITY DISORDER
     Dosage: interrupted in Sep12,restarted on 13/14Sep12
  3. ABILIFY [Suspect]
     Indication: BIPOLAR I DISORDER
     Dosage: interrupted in Sep12,restarted on 13/14Sep12
  4. ADDERALL [Suspect]
  5. PROZAC [Suspect]

REACTIONS (15)
  - Road traffic accident [Unknown]
  - Cerebral cyst [Unknown]
  - Rib fracture [Unknown]
  - Paranoia [Unknown]
  - Weight decreased [Unknown]
  - Memory impairment [Unknown]
  - Disturbance in attention [Unknown]
  - Agitation [Unknown]
  - Insomnia [Recovered/Resolved]
  - Abnormal behaviour [Unknown]
  - Oropharyngeal pain [Unknown]
  - Stomatitis [Unknown]
  - Treatment noncompliance [Unknown]
  - Psychiatric symptom [Unknown]
  - Drug ineffective [Unknown]
